FAERS Safety Report 8989085 (Version 1)
Quarter: 2012Q4

REPORT INFORMATION
  Report Type: Spontaneous
  Country: US (occurrence: None)
  Receive Date: 20121224
  Receipt Date: 20121224
  Transmission Date: 20130627
  Serious: Yes (Life-Threatening, Hospitalization, Disabling)
  Sender: FDA-Public Use
  Company Number: None

PATIENT
  Sex: Male
  Weight: 101.2 kg

DRUGS (4)
  1. LAMOTRIGINE [Suspect]
     Indication: SEIZURE
     Dosage: po
     Route: 048
  2. CEPHALEXIN [Suspect]
     Indication: FEVER
     Dosage: 500 mg every 8 hours po
     Route: 048
  3. CEPHALEXIN [Suspect]
     Indication: POST PROCEDURAL INFECTION
     Dosage: 500 mg every 8 hours po
     Route: 048
  4. AMOXICILLIN [Concomitant]

REACTIONS (1)
  - Toxic epidermal necrolysis [None]
